FAERS Safety Report 17409663 (Version 1)
Quarter: 2020Q1

REPORT INFORMATION
  Report Type: Spontaneous
  Country: US (occurrence: US)
  Receive Date: 20200212
  Receipt Date: 20200212
  Transmission Date: 20200409
  Serious: No
  Sender: FDA-Public Use
  Company Number: US-TARO-2019TAR00107

PATIENT
  Age: 60 Year
  Sex: Female

DRUGS (2)
  1. FLUOCINONIDE TOPICAL SOLUTION USP 0.05% [Suspect]
     Active Substance: FLUOCINONIDE
     Indication: DRY SKIN
     Route: 061
  2. UNSPECIFIED PRODUCT [Suspect]
     Active Substance: UNSPECIFIED INGREDIENT
     Indication: DRY SKIN
     Route: 061

REACTIONS (2)
  - Alopecia [Not Recovered/Not Resolved]
  - Off label use [Recovered/Resolved]

NARRATIVE: CASE EVENT DATE: 201812
